FAERS Safety Report 10005541 (Version 1)
Quarter: 2014Q1

REPORT INFORMATION
  Report Type: Spontaneous
  Country: IT (occurrence: IT)
  Receive Date: 20140313
  Receipt Date: 20140313
  Transmission Date: 20141002
  Serious: Yes (Hospitalization)
  Sender: FDA-Public Use
  Company Number: IT-RANBAXY-2014RR-78847

PATIENT
  Age: 29 Year
  Sex: Male

DRUGS (3)
  1. PARACETAMOL [Suspect]
     Indication: INTENTIONAL SELF-INJURY
     Dosage: 1 DOSAGE UNIT COMPLETE
     Route: 048
     Dates: start: 20140218, end: 20140218
  2. CO-EFERALGAN [Suspect]
     Indication: INTENTIONAL SELF-INJURY
     Dosage: 1 DOSAGE UNIT COMPLETE
     Route: 048
     Dates: start: 20140218, end: 20140218
  3. VALIUM [Suspect]
     Indication: INTENTIONAL SELF-INJURY
     Dosage: 1 DOSAGE UNIT COMPLETE
     Route: 048
     Dates: start: 20140218, end: 20140218

REACTIONS (3)
  - Bradykinesia [Recovering/Resolving]
  - Intentional self-injury [Recovering/Resolving]
  - Sopor [Recovering/Resolving]
